FAERS Safety Report 9209567 (Version 1)
Quarter: 2013Q2

REPORT INFORMATION
  Report Type: Report from Study
  Country: US (occurrence: US)
  Receive Date: 20130404
  Receipt Date: 20130404
  Transmission Date: 20140414
  Serious: Yes (Death)
  Sender: FDA-Public Use
  Company Number: US-ACTELION-A-NJ2012-59271

PATIENT
  Age: 68 Year
  Sex: Female

DRUGS (5)
  1. TRACLEER [Suspect]
     Indication: PULMONARY ARTERIAL HYPERTENSION
     Dosage: UNK
     Route: 048
  2. REVATIO [Concomitant]
  3. ADCIRCA [Concomitant]
  4. REMODULIN [Concomitant]
  5. COUMADIN [Concomitant]

REACTIONS (7)
  - Death [Fatal]
  - Epistaxis [Unknown]
  - Pulmonary arterial hypertension [Unknown]
  - Dyspnoea [Unknown]
  - Fatigue [Unknown]
  - Cyanosis [Unknown]
  - Condition aggravated [Unknown]
